FAERS Safety Report 17182142 (Version 1)
Quarter: 2019Q4

REPORT INFORMATION
  Report Type: Report from Study
  Country: US (occurrence: US)
  Receive Date: 20191219
  Receipt Date: 20191219
  Transmission Date: 20200122
  Serious: Yes (Hospitalization)
  Sender: FDA-Public Use
  Company Number: US-GILEAD-2019-0417465

PATIENT
  Age: 61 Year
  Sex: Male
  Weight: 132.2 kg

DRUGS (35)
  1. CYCLOPHOSPHAMIDE. [Suspect]
     Active Substance: CYCLOPHOSPHAMIDE
     Indication: BONE MARROW CONDITIONING REGIMEN
     Dosage: 1305
     Route: 042
     Dates: start: 20190626, end: 20190626
  2. ACETAMINOPHEN. [Concomitant]
     Active Substance: ACETAMINOPHEN
     Dosage: 650,MG,AS NECESSARY
     Route: 048
     Dates: start: 20190702, end: 20190706
  3. APIXABAN [Concomitant]
     Active Substance: APIXABAN
     Dosage: 5,MG,TWICE DAILY
     Route: 048
     Dates: start: 20180201
  4. AXICABTAGENE CILOLEUCEL [Suspect]
     Active Substance: AXICABTAGENE CILOLEUCEL
     Indication: B-CELL LYMPHOMA
  5. FLUDARABINE [Suspect]
     Active Substance: FLUDARABINE PHOSPHATE
     Dosage: 78
     Route: 042
     Dates: start: 20190627, end: 20190627
  6. FLUDARABINE [Suspect]
     Active Substance: FLUDARABINE PHOSPHATE
     Dosage: 78
     Route: 042
     Dates: start: 20190628, end: 20190628
  7. VANCOMYCIN [Concomitant]
     Active Substance: VANCOMYCIN
     Dosage: 1,G,DAILY
     Route: 041
     Dates: start: 20190628, end: 20190628
  8. PRAVASTATIN. [Concomitant]
     Active Substance: PRAVASTATIN
     Dosage: 40,MG,DAILY
     Route: 048
     Dates: start: 20050101
  9. IMODIUM [Concomitant]
     Active Substance: LOPERAMIDE HYDROCHLORIDE
     Dosage: 4,MG,FOUR TIMES DAILY
     Route: 048
     Dates: start: 20190704, end: 20190706
  10. FILGRASTIM [Concomitant]
     Active Substance: FILGRASTIM
     Dosage: 480,OTHER,DAILY
     Route: 058
     Dates: start: 20190730, end: 20190804
  11. CYCLOPHOSPHAMIDE. [Suspect]
     Active Substance: CYCLOPHOSPHAMIDE
     Dosage: 1305
     Route: 042
     Dates: start: 20190628, end: 20190628
  12. CEFEPIME [Concomitant]
     Active Substance: CEFEPIME HYDROCHLORIDE
     Dosage: 2,MG,DAILY
     Route: 041
     Dates: start: 20190628, end: 20190628
  13. SIMETHICONE (DIMETHICONE) [Concomitant]
     Active Substance: DIMETHICONE
     Dosage: 80,MG,THREE TIMES DAILY
     Route: 048
     Dates: start: 20190705, end: 20190713
  14. KEPPRA [Concomitant]
     Active Substance: LEVETIRACETAM
     Dosage: 500,MG,TWICE DAILY
     Route: 048
     Dates: start: 20190707, end: 20190716
  15. DEXAMETHASONE. [Concomitant]
     Active Substance: DEXAMETHASONE
     Dosage: 10 MG, Q6H
     Route: 042
  16. BUPROPION. [Concomitant]
     Active Substance: BUPROPION
     Dosage: 300,MG,DAILY
     Route: 048
     Dates: start: 20000101
  17. METFORMIN [Concomitant]
     Active Substance: METFORMIN HYDROCHLORIDE
     Dosage: 500,MG,DAILY
     Route: 048
     Dates: start: 20180401
  18. LOPRESSOR [Concomitant]
     Active Substance: METOPROLOL TARTRATE
     Dosage: 25,MG,FOUR TIMES DAILY
     Route: 048
     Dates: start: 20190704, end: 20190705
  19. CEFEPIME [Concomitant]
     Active Substance: CEFEPIME HYDROCHLORIDE
     Dosage: 2,G,OTHER
     Route: 041
     Dates: start: 20190702, end: 20190703
  20. NEBIVOLOL. [Concomitant]
     Active Substance: NEBIVOLOL
     Dosage: 5,MG,DAILY
     Route: 048
     Dates: start: 20150101
  21. FLUDARABINE [Suspect]
     Active Substance: FLUDARABINE PHOSPHATE
     Indication: BONE MARROW CONDITIONING REGIMEN
     Dosage: 78
     Route: 042
     Dates: start: 20190626, end: 20190626
  22. CYCLOPHOSPHAMIDE. [Suspect]
     Active Substance: CYCLOPHOSPHAMIDE
     Dosage: 1305
     Route: 042
     Dates: start: 20190627, end: 20190627
  23. DILTIAZEM. [Concomitant]
     Active Substance: DILTIAZEM
     Dosage: 30,MG,FOUR TIMES DAILY
     Route: 048
     Dates: start: 20190703, end: 20190703
  24. ZOLPIDEM [Concomitant]
     Active Substance: ZOLPIDEM TARTRATE
     Dosage: 5,MG,DAILY
     Route: 048
     Dates: start: 20190705, end: 20190705
  25. ACETAMINOPHEN. [Concomitant]
     Active Substance: ACETAMINOPHEN
     Dosage: 650,MG,DAILY
     Route: 048
     Dates: start: 20190701, end: 20190706
  26. XANAX [Concomitant]
     Active Substance: ALPRAZOLAM
     Dosage: 0.25,MG,AS NECESSARY
     Route: 048
     Dates: start: 20190704, end: 20190704
  27. AXICABTAGENE CILOLEUCEL [Suspect]
     Active Substance: AXICABTAGENE CILOLEUCEL
     Indication: NON-HODGKIN^S LYMPHOMA UNSPECIFIED HISTOLOGY INDOLENT
     Dosage: UNK
     Route: 042
     Dates: start: 20190701, end: 20190701
  28. ONDANSETRON [Concomitant]
     Active Substance: ONDANSETRON
     Dosage: 12,MG,DAILY
     Route: 041
     Dates: start: 20190702, end: 20190702
  29. LASIX [Concomitant]
     Active Substance: FUROSEMIDE
     Dosage: 20,MG,DAILY
     Route: 048
     Dates: start: 20190705, end: 20190705
  30. KEPPRA [Concomitant]
     Active Substance: LEVETIRACETAM
     Dosage: 250 UG, 12 HOURS
  31. LOPRESSOR [Concomitant]
     Active Substance: METOPROLOL TARTRATE
     Dosage: 50,MG,THREE TIMES DAILY
     Route: 048
     Dates: start: 20190705, end: 20190707
  32. HYCODAN [HYDROCODONE BITARTRATE] [Concomitant]
     Active Substance: HYDROCODONE BITARTRATE
     Dosage: 5,ML,AS NECESSARY
     Route: 048
     Dates: start: 20190705, end: 20190713
  33. FILGRASTIM [Concomitant]
     Active Substance: FILGRASTIM
     Dosage: 480,UG,DAILY
     Route: 058
     Dates: start: 20190705, end: 20190708
  34. DILTIAZEM. [Concomitant]
     Active Substance: DILTIAZEM
     Dosage: 300,MG,DAILY
     Route: 048
     Dates: start: 20050101
  35. DEXAMETHASONE. [Concomitant]
     Active Substance: DEXAMETHASONE
     Dosage: 10,MG,FOUR TIMES DAILY
     Route: 041
     Dates: start: 20190707, end: 20190709

REACTIONS (3)
  - Cytokine release syndrome [Recovered/Resolved]
  - Cytokine release syndrome [Recovered/Resolved]
  - Confusional state [Recovered/Resolved]

NARRATIVE: CASE EVENT DATE: 20190702
